FAERS Safety Report 5618773-9 (Version None)
Quarter: 2008Q1

REPORT INFORMATION
  Report Type: 
  Country: None (occurrence: None)
  Receive Date: 20080207
  Receipt Date: 20080204
  Transmission Date: 20080703
  Serious: Yes (Life-Threatening, Hospitalization, Other)
  Sender: FDA-Public Use
  Company Number: JP-BRISTOL-MYERS SQUIBB COMPANY-13891965

PATIENT
  Age: 49 Year
  Sex: Male

DRUGS (12)
  1. REYATAZ [Suspect]
     Indication: HIV INFECTION
     Route: 048
     Dates: start: 20070224, end: 20070319
  2. COMBIVIR [Suspect]
     Indication: HIV INFECTION
     Dosage: 1 DOSAGE FORM = 1 TABLET
     Route: 048
     Dates: start: 20061114, end: 20061211
  3. KALETRA [Suspect]
     Indication: HIV INFECTION
     Dosage: 1 DOSAGE FORM = 1 TABLET
     Route: 048
     Dates: start: 20061114, end: 20070223
  4. EPZICOM [Suspect]
     Indication: HIV INFECTION
     Route: 048
     Dates: start: 20061212, end: 20070319
  5. FOSCAVIR [Suspect]
     Indication: ENCEPHALITIS CYTOMEGALOVIRUS
     Dosage: DOSE CHANGED TO 35MG/KG FROM 9DEC06-30DEC06 AND 20JAN07-01FEB07; 70 MG/KG FROM 23-NOV-06 - 8-DEC-06
     Route: 042
     Dates: start: 20061123, end: 20070201
  6. ZITHROMAX [Suspect]
     Indication: INFECTION PROPHYLAXIS
     Route: 048
     Dates: start: 20061106
  7. VALGANCICLOVIR HCL [Suspect]
     Indication: ENCEPHALITIS CYTOMEGALOVIRUS
     Dosage: 900MG TILL 8-DEC-2006, DOSE CHANGED TO 450 MG FROM 9-DEC-06-UNKNOWN
     Route: 048
     Dates: start: 20061123
  8. BAKTAR [Concomitant]
     Indication: PROPHYLAXIS
     Dosage: 1 DOSAGE FORM = 1 TABLET
     Route: 048
     Dates: start: 20061106, end: 20061122
  9. ROCEPHIN [Concomitant]
     Dosage: 1000MG-1/1DAY FROM 25OCT06-31OCT06; 2000MG-1/1DAY FROM 08NOV2006-23NOV06
     Route: 042
     Dates: start: 20061025, end: 20061123
  10. GASTER D [Concomitant]
     Route: 048
     Dates: start: 20061116, end: 20070306
  11. FUNGIZONE [Concomitant]
     Route: 048
     Dates: start: 20061103, end: 20070220
  12. DIFLUCAN [Concomitant]
     Indication: OESOPHAGEAL CANDIDIASIS
     Route: 048
     Dates: start: 20061108, end: 20070127

REACTIONS (13)
  - ACUTE RESPIRATORY FAILURE [None]
  - BONE MARROW FAILURE [None]
  - C-REACTIVE PROTEIN INCREASED [None]
  - CEREBRAL TOXOPLASMOSIS [None]
  - DISSEMINATED INTRAVASCULAR COAGULATION [None]
  - EATING DISORDER [None]
  - ENCEPHALITIS [None]
  - LOSS OF CONSCIOUSNESS [None]
  - PANCYTOPENIA [None]
  - PNEUMOTHORAX [None]
  - RESPIRATORY ARREST [None]
  - SEPSIS [None]
  - SHOCK [None]
